FAERS Safety Report 11999404 (Version 2)
Quarter: 2020Q3

REPORT INFORMATION
  Report Type: Spontaneous
  Country: DE (occurrence: DE)
  Receive Date: 20160204
  Receipt Date: 20181003
  Transmission Date: 20201104
  Serious: Yes (Life-Threatening)
  Sender: FDA-Public Use
  Company Number: DE-ROCHE-1703503

PATIENT
  Age: 73 Year
  Sex: Female
  Weight: 61 kg

DRUGS (4)
  1. ILOMEDIN [Suspect]
     Active Substance: ILOPROST TROMETHAMINE
     Indication: OSTEONECROSIS
     Route: 042
     Dates: start: 20130726, end: 20130730
  2. INFLUSPLIT TETRA [Suspect]
     Active Substance: INFLUENZA VIRUS VACCINE
     Indication: PROPHYLAXIS
     Route: 030
     Dates: start: 20151012
  3. IBANDRONIC ACID. [Suspect]
     Active Substance: IBANDRONIC ACID
     Indication: OSTEOPOROSIS
     Route: 042
     Dates: start: 20140404, end: 20151012
  4. ALENDRONATE [Concomitant]
     Active Substance: ALENDRONATE SODIUM
     Route: 065
     Dates: start: 20121024, end: 20130730

REACTIONS (1)
  - Congestive cardiomyopathy [Unknown]
